FAERS Safety Report 4360280-8 (Version None)
Quarter: 2004Q2

REPORT INFORMATION
  Report Type: 
  Country: None (occurrence: None)
  Receive Date: 20040518
  Receipt Date: 20040518
  Transmission Date: 20050107
  Serious: Yes (Other)
  Sender: FDA-Public Use
  Company Number: None

PATIENT
  Age: 80 Year
  Sex: Female
  Weight: 49.8957 kg

DRUGS (7)
  1. FLOXIN [Suspect]
     Indication: URINARY TRACT INFECTION
     Dosage: 400 MG PO
     Route: 048
     Dates: start: 20010126, end: 20010129
  2. PREMARIN [Concomitant]
  3. IMDUR [Concomitant]
  4. METOPROLOL [Concomitant]
  5. SYNTHROID [Concomitant]
  6. RHINOCORT [Concomitant]
  7. NASACORT [Concomitant]

REACTIONS (2)
  - DIZZINESS [None]
  - MUSCLE CRAMP [None]
